FAERS Safety Report 10870013 (Version 1)
Quarter: 2015Q1

REPORT INFORMATION
  Report Type: Spontaneous
  Country: US (occurrence: None)
  Receive Date: 20150223
  Receipt Date: 20150223
  Transmission Date: 20150721
  Serious: Yes (Congenital Anomaly)
  Sender: FDA-Public Use
  Company Number: UCM201502-000125

PATIENT
  Sex: Female
  Weight: 2.66 kg

DRUGS (4)
  1. TOPIRAMATE (TOPIRAMATE) (TOPIRAMATE) [Suspect]
     Active Substance: TOPIRAMATE
     Route: 064
  2. ESCITALOPRAM [Suspect]
     Active Substance: ESCITALOPRAM OXALATE
     Route: 064
  3. TRAMADOL (TRAMADOL) (TRAMADOL) [Suspect]
     Active Substance: TRAMADOL
     Route: 064
  4. OXYCODONE/ACETAMINOPHEN [Suspect]
     Active Substance: ACETAMINOPHEN\OXYCODONE HYDROCHLORIDE

REACTIONS (8)
  - Rib hypoplasia [None]
  - Congenital diaphragmatic eventration [None]
  - Deformity thorax [None]
  - Cardiac malposition [None]
  - Nipple disorder [None]
  - Atrial septal defect [None]
  - Maternal drugs affecting foetus [None]
  - Patent ductus arteriosus [None]
